FAERS Safety Report 5449501-8 (Version None)
Quarter: 2007Q3

REPORT INFORMATION
  Report Type: 
  Country: None (occurrence: None)
  Receive Date: 20070907
  Receipt Date: 20070824
  Transmission Date: 20080115
  Serious: Yes (Hospitalization)
  Sender: FDA-Public Use
  Company Number: 003#1#2007-00145

PATIENT
  Age: 72 Year
  Sex: Female

DRUGS (2)
  1. NEUPRO [Suspect]
     Dosage: 8 MG/24H (8 MG/24H 1 IN 1 DAY (S)) TRANSDERMAL, 6 MG/24H 1 IN 1 DAY (S)), TRANSDERMAL
     Route: 062
     Dates: end: 20070803
  2. NEUPRO [Suspect]
     Dosage: 8 MG/24H (8 MG/24H 1 IN 1 DAY (S)) TRANSDERMAL, 6 MG/24H 1 IN 1 DAY (S)), TRANSDERMAL
     Route: 062
     Dates: start: 20070803

REACTIONS (2)
  - CONDITION AGGRAVATED [None]
  - GLAUCOMA [None]
